FAERS Safety Report 11895963 (Version 1)
Quarter: 2016Q1

REPORT INFORMATION
  Report Type: Report from Study
  Country: CO (occurrence: CO)
  Receive Date: 20160107
  Receipt Date: 20160107
  Transmission Date: 20160526
  Serious: Yes (Hospitalization, Other)
  Sender: FDA-Public Use
  Company Number: CO-INCYTE CORPORATION-2015IN006405

PATIENT
  Age: 71 Year
  Sex: Female
  Weight: 76 kg

DRUGS (1)
  1. JAKAFI [Suspect]
     Active Substance: RUXOLITINIB
     Indication: PRIMARY MYELOFIBROSIS
     Dosage: 5 MG, QD
     Route: 048
     Dates: start: 20150408

REACTIONS (6)
  - Back pain [Recovering/Resolving]
  - Haematoma [Unknown]
  - Pain in extremity [Recovering/Resolving]
  - Malaise [Not Recovered/Not Resolved]
  - Sciatic nerve neuropathy [Unknown]
  - Neck pain [Recovering/Resolving]

NARRATIVE: CASE EVENT DATE: 20151115
